FAERS Safety Report 14127411 (Version 1)
Quarter: 2017Q4

REPORT INFORMATION
  Report Type: Spontaneous
  Country: US (occurrence: US)
  Receive Date: 20171026
  Receipt Date: 20171026
  Transmission Date: 20180321
  Serious: No
  Sender: FDA-Public Use
  Company Number: US-TEVA-765967ACC

PATIENT
  Sex: Male

DRUGS (11)
  1. TRAZODONE [Concomitant]
     Active Substance: TRAZODONE HYDROCHLORIDE
  2. AZILECT [Concomitant]
     Active Substance: RASAGILINE MESYLATE
  3. MIDRODINE [Concomitant]
     Dosage: 30 MILLIGRAM DAILY;
     Route: 048
  4. OXYBUTYININE [Concomitant]
  5. DITROPAN [Concomitant]
     Active Substance: OXYBUTYNIN CHLORIDE
  6. ASPIRIN. [Concomitant]
     Active Substance: ASPIRIN
  7. CARBIDOPA AND LEVODOPA [Suspect]
     Active Substance: CARBIDOPA\LEVODOPA
     Indication: PARKINSON^S DISEASE
     Dosage: 25/100 MG; AS NEEDED
     Route: 048
  8. LEXAPRO [Concomitant]
     Active Substance: ESCITALOPRAM OXALATE
  9. AMANTADINE. [Concomitant]
     Active Substance: AMANTADINE HYDROCHLORIDE
  10. FINASTERIDE. [Concomitant]
     Active Substance: FINASTERIDE
  11. RAPAFLO [Concomitant]
     Active Substance: SILODOSIN

REACTIONS (8)
  - Feeling abnormal [Unknown]
  - Withdrawal syndrome [Unknown]
  - Insomnia [Unknown]
  - Asthenia [Unknown]
  - Pain [Unknown]
  - Drug ineffective [Unknown]
  - Muscle twitching [Unknown]
  - Mobility decreased [Unknown]
